FAERS Safety Report 5782495-4 (Version None)
Quarter: 2008Q2

REPORT INFORMATION
  Report Type: 
  Country: None (occurrence: None)
  Receive Date: 20080623
  Receipt Date: 20080611
  Transmission Date: 20081010
  Serious: Yes (Other)
  Sender: FDA-Public Use
  Company Number: US-PFIZER INC-2008045804

PATIENT
  Sex: Female

DRUGS (2)
  1. CHANTIX [Suspect]
  2. ZOLOFT [Suspect]
     Indication: DEPRESSION

REACTIONS (8)
  - CHRONIC OBSTRUCTIVE PULMONARY DISEASE [None]
  - HYPERSOMNIA [None]
  - MUSCLE SPASMS [None]
  - PERICARDIAL EFFUSION [None]
  - PULMONARY OEDEMA [None]
  - VIRAL INFECTION [None]
  - WEIGHT DECREASED [None]
  - WEIGHT INCREASED [None]
